FAERS Safety Report 6978550-3 (Version None)
Quarter: 2010Q3

REPORT INFORMATION
  Report Type: 
  Country: None (occurrence: None)
  Receive Date: 20100913
  Receipt Date: 20100908
  Transmission Date: 20110219
  Serious: Yes (Other)
  Sender: FDA-Public Use
  Company Number: US-SANOFI-AVENTIS-2010SA050251

PATIENT
  Age: 58 Year
  Sex: Male
  Weight: 84.09 kg

DRUGS (5)
  1. MULTAQ [Suspect]
     Indication: ATRIAL FIBRILLATION
     Route: 048
     Dates: start: 20100609
  2. NEXIUM [Concomitant]
     Dates: start: 20100101
  3. CRESTOR [Concomitant]
     Dates: start: 20000101
  4. ATACAND [Concomitant]
     Dates: start: 20000101
  5. OPHTHALMOLOGICALS [Concomitant]

REACTIONS (1)
  - ATRIAL FIBRILLATION [None]
